FAERS Safety Report 8431615-1 (Version None)
Quarter: 2012Q2

REPORT INFORMATION
  Report Type: 
  Country: None (occurrence: None)
  Receive Date: 20120613
  Receipt Date: 20120605
  Transmission Date: 20120825
  Serious: Yes (Other)
  Sender: FDA-Public Use
  Company Number: US-US-EMD SERONO, INC.-7027721

PATIENT
  Sex: Female

DRUGS (2)
  1. CONTRACEPTION [Concomitant]
     Indication: CONTRACEPTION
  2. REBIF [Suspect]
     Indication: MULTIPLE SCLEROSIS
     Route: 058
     Dates: start: 20100715

REACTIONS (4)
  - ANXIETY [None]
  - URINARY TRACT INFECTION [None]
  - PROTEIN C DECREASED [None]
  - INJECTION SITE REACTION [None]
